FAERS Safety Report 4992477-8 (Version None)
Quarter: 2006Q1

REPORT INFORMATION
  Report Type: 
  Country: None (occurrence: None)
  Receive Date: 20060314
  Receipt Date: 20051205
  Transmission Date: 20060701
  Serious: Yes (Hospitalization)
  Sender: FDA-Public Use
  Company Number: 2005-02419

PATIENT
  Age: 72 Year
  Sex: Female
  Weight: 114.8 kg

DRUGS (7)
  1. VELCADE [Suspect]
     Indication: MULTIPLE MYELOMA
     Dosage: 2.90 MG, 2/WEEK, INTRAVENOUS
     Route: 042
     Dates: start: 20050822
  2. DOXIL [Suspect]
     Indication: MULTIPLE MYELOMA
     Dosage: 66.00 MG, Q3WEEKS, INTRAVENOUS
     Route: 042
     Dates: start: 20050825
  3. PROCRIT [Concomitant]
  4. ANZEMET [Concomitant]
  5. NORVASC [Concomitant]
  6. ALLOPURINOL [Concomitant]
  7. GLYBURIDE [Concomitant]

REACTIONS (3)
  - CARDIAC FAILURE CONGESTIVE [None]
  - DYSPNOEA [None]
  - PNEUMONIA [None]
